FAERS Safety Report 22340601 (Version 1)
Quarter: 2023Q2

REPORT INFORMATION
  Report Type: Spontaneous
  Country: DE (occurrence: None)
  Receive Date: 20230518
  Receipt Date: 20230518
  Transmission Date: 20230722
  Serious: Yes (Other)
  Sender: FDA-Public Use
  Company Number: 2023A108827

PATIENT
  Age: 7 Year
  Sex: Male

DRUGS (1)
  1. KOSELUGO [Suspect]
     Active Substance: SELUMETINIB
     Indication: Brain neoplasm
     Route: 048
     Dates: end: 20230505

REACTIONS (1)
  - Neoplasm progression [Not Recovered/Not Resolved]
